FAERS Safety Report 5252822-5 (Version None)
Quarter: 2007Q1

REPORT INFORMATION
  Report Type: 
  Country: None (occurrence: None)
  Receive Date: 20070301
  Receipt Date: 20070215
  Transmission Date: 20070707
  Serious: Yes (Death)
  Sender: FDA-Public Use
  Company Number: AR-BRISTOL-MYERS SQUIBB COMPANY-13562590

PATIENT
  Age: 67 Year
  Sex: Male
  Weight: 70 kg

DRUGS (12)
  1. CISPLATIN [Suspect]
     Indication: LUNG NEOPLASM MALIGNANT
     Route: 042
     Dates: start: 20050121
  2. ALIMTA [Suspect]
     Indication: LUNG NEOPLASM MALIGNANT
     Route: 042
     Dates: start: 20050121
  3. FOLIC ACID [Concomitant]
     Dates: start: 20050114, end: 20050206
  4. TRAMADOL HCL [Concomitant]
     Indication: ANALGESIC EFFECT
     Dates: start: 20050114, end: 20050206
  5. ENALAPRIL MALEATE [Concomitant]
     Indication: PROPHYLAXIS
     Dates: end: 20050206
  6. RANITIDINE [Concomitant]
     Indication: ANTACID THERAPY
     Dates: end: 20050206
  7. CODEINE [Concomitant]
     Indication: COUGH
     Dates: end: 20050206
  8. CILOSTAZOL [Concomitant]
     Indication: VASODILATION PROCEDURE
     Dates: start: 20030501, end: 20050206
  9. VITAMIN B-12 [Concomitant]
     Dates: start: 20050114, end: 20050114
  10. ONDANSETRON [Concomitant]
     Indication: PROPHYLAXIS OF NAUSEA AND VOMITING
     Dates: start: 20050121, end: 20050121
  11. DEXAMETHASONE [Concomitant]
     Dates: start: 20050120, end: 20050122
  12. CILOSTAZOL [Concomitant]
     Dates: start: 20030501, end: 20050206

REACTIONS (2)
  - DYSPNOEA [None]
  - RENAL FAILURE [None]
